FAERS Safety Report 25774668 (Version 1)
Quarter: 2025Q3

REPORT INFORMATION
  Report Type: Report from Study
  Country: US (occurrence: US)
  Receive Date: 20250908
  Receipt Date: 20250908
  Transmission Date: 20251021
  Serious: Yes (Death, Hospitalization, Other)
  Sender: SAREPTA THERAPEUTICS
  Company Number: US-SAREPTA THERAPEUTICS INC.-SRP2025-006329

PATIENT
  Age: 24 Year
  Sex: Male

DRUGS (4)
  1. ETEPLIRSEN [Suspect]
     Active Substance: ETEPLIRSEN
     Indication: Product used for unknown indication
     Route: 042
  2. ETEPLIRSEN [Suspect]
     Active Substance: ETEPLIRSEN
     Route: 042
     Dates: start: 20250627
  3. ABILIFY [Concomitant]
     Active Substance: ARIPIPRAZOLE
     Indication: Product used for unknown indication
     Dates: end: 20250202
  4. ABILIFY [Concomitant]
     Active Substance: ARIPIPRAZOLE
     Dates: start: 20250801

REACTIONS (13)
  - Respiratory arrest [Fatal]
  - Cardiac arrest [Fatal]
  - Oxygen saturation decreased [Unknown]
  - Pneumonia aspiration [Unknown]
  - Sepsis [Unknown]
  - Acute kidney injury [Unknown]
  - Psychotic disorder [Unknown]
  - Heart rate increased [Unknown]
  - Penile discomfort [Unknown]
  - Compulsions [Unknown]
  - Toxicity to various agents [Unknown]
  - Cough [Unknown]
  - Pyrexia [Unknown]

NARRATIVE: CASE EVENT DATE: 20250401
